FAERS Safety Report 9549626 (Version 2)
Quarter: 2013Q3

REPORT INFORMATION
  Report Type: Spontaneous
  Country: US (occurrence: US)
  Receive Date: 20130924
  Receipt Date: 20130924
  Transmission Date: 20140515
  Serious: Yes (Hospitalization)
  Sender: FDA-Public Use
  Company Number: US-OTSUKA-US-2013-11647

PATIENT
  Age: 45 Year
  Sex: Female
  Weight: 73.47 kg

DRUGS (3)
  1. ABILIFY MAINTENA [Suspect]
     Indication: SCHIZOAFFECTIVE DISORDER
     Dosage: 300 MG MILLIGRAM(S), UNK
     Route: 030
     Dates: start: 20130626
  2. ABILIFY MAINTENA [Suspect]
     Dosage: 400 MG MILLIGRAM(S), QM
     Route: 030
  3. ABILIFY [Concomitant]
     Indication: PRODUCT USED FOR UNKNOWN INDICATION
     Dosage: 10, MG MILLIGRAM(S), HS
     Route: 048
     Dates: start: 20091005, end: 20130710

REACTIONS (2)
  - Schizoaffective disorder [Recovered/Resolved]
  - Off label use [Unknown]
